FAERS Safety Report 8348186-0 (Version None)
Quarter: 2012Q2

REPORT INFORMATION
  Report Type: 
  Country: None (occurrence: None)
  Receive Date: 20120509
  Receipt Date: 20120504
  Transmission Date: 20120825
  Serious: Yes (Hospitalization)
  Sender: FDA-Public Use
  Company Number: US-B.I. PHARMACEUTICALS,INC./RIDGEFIELD-2012-BP-10325PF

PATIENT
  Sex: Male

DRUGS (2)
  1. SPIRIVA [Suspect]
  2. LYRICA [Suspect]

REACTIONS (3)
  - PULMONARY EMBOLISM [None]
  - NEPHROLITHIASIS [None]
  - NEUROPATHY PERIPHERAL [None]
